FAERS Safety Report 7609207-3 (Version None)
Quarter: 2011Q3

REPORT INFORMATION
  Report Type: 
  Country: None (occurrence: None)
  Receive Date: 20110714
  Receipt Date: 20110701
  Transmission Date: 20111222
  Serious: Yes (Hospitalization, Other)
  Sender: FDA-Public Use
  Company Number: US-BAYER-2011-015686

PATIENT
  Age: 30 Year
  Sex: Female
  Weight: 89.342 kg

DRUGS (6)
  1. YASMIN [Suspect]
     Dosage: UNK
     Dates: start: 20070901, end: 20080701
  2. IBUPROFEN [Concomitant]
  3. YASMIN [Suspect]
     Dosage: UNK
     Dates: start: 20070901, end: 20080601
  4. YAZ [Suspect]
     Dosage: UNK
     Dates: start: 20041101, end: 20060901
  5. YAZ [Suspect]
     Dosage: UNK
     Dates: start: 20070901, end: 20080601
  6. ANTIBIOTICS [Concomitant]
     Dosage: UNK
     Dates: start: 20090514

REACTIONS (7)
  - PANCREATIC INJURY [None]
  - ABDOMINAL PAIN UPPER [None]
  - GALLBLADDER DISORDER [None]
  - CHOLELITHIASIS [None]
  - PAIN [None]
  - CHOLECYSTITIS CHRONIC [None]
  - PANCREATITIS [None]
